FAERS Safety Report 10423712 (Version 1)
Quarter: 2014Q3

REPORT INFORMATION
  Report Type: Spontaneous
  Country: US (occurrence: None)
  Receive Date: 20140722
  Receipt Date: 20140722
  Transmission Date: 20150326
  Serious: No
  Sender: FDA-Public Use
  Company Number: 163-10005-14062812

PATIENT
  Age: 56 Year
  Sex: Female

DRUGS (6)
  1. OTEZLA [Suspect]
     Active Substance: APREMILAST
     Indication: PSORIATIC ARTHROPATHY
     Route: 048
     Dates: start: 20140524
  2. CYMBALTA [Concomitant]
     Active Substance: DULOXETINE HYDROCHLORIDE
  3. ESTRADIOL (ESTRADIOL) [Concomitant]
  4. ARMOUR THYROID (THYROID) [Concomitant]
  5. PROGESTERONE (PROGESTERONE) [Concomitant]
  6. HYDROCODONE (HYDROCODONE) [Concomitant]
     Active Substance: HYDROCODONE

REACTIONS (2)
  - Migraine [None]
  - Pain in jaw [None]

NARRATIVE: CASE EVENT DATE: 20140609
